FAERS Safety Report 16762142 (Version 1)
Quarter: 2019Q3

REPORT INFORMATION
  Report Type: Spontaneous
  Country: JP (occurrence: JP)
  Receive Date: 20190830
  Receipt Date: 20190830
  Transmission Date: 20191005
  Serious: Yes (Hospitalization)
  Sender: FDA-Public Use
  Company Number: PHJP2019JP008331

PATIENT
  Age: 52 Year
  Sex: Male

DRUGS (2)
  1. PREDNISOLONE. [Suspect]
     Active Substance: PREDNISOLONE
     Indication: MYASTHENIA GRAVIS
     Dosage: 20 MG, UNK
     Route: 048
  2. NEORAL [Suspect]
     Active Substance: CYCLOSPORINE
     Indication: MYASTHENIA GRAVIS
     Dosage: 200 MG, UNK
     Route: 048

REACTIONS (7)
  - Erythema [Unknown]
  - Dysstasia [Unknown]
  - Cellulitis [Recovering/Resolving]
  - Product use in unapproved indication [Unknown]
  - Peripheral swelling [Unknown]
  - Bacteraemia [Recovering/Resolving]
  - Pain [Unknown]
